FAERS Safety Report 13404798 (Version 2)
Quarter: 2017Q2

REPORT INFORMATION
  Report Type: Report from Study
  Country: BR (occurrence: BR)
  Receive Date: 20170405
  Receipt Date: 20170517
  Transmission Date: 20170830
  Serious: Yes (Hospitalization)
  Sender: FDA-Public Use
  Company Number: BR-ROCHE-1911721

PATIENT
  Sex: Female

DRUGS (2)
  1. MABTHERA [Suspect]
     Active Substance: RITUXIMAB
     Indication: RHEUMATOID ARTHRITIS
     Route: 042
     Dates: start: 20151013
  2. ARADOIS [Concomitant]
     Active Substance: LOSARTAN POTASSIUM
     Indication: HYPERTENSION
     Route: 065

REACTIONS (3)
  - Diabetes mellitus [Not Recovered/Not Resolved]
  - Gastrointestinal carcinoma [Not Recovered/Not Resolved]
  - Gastrointestinal motility disorder [Not Recovered/Not Resolved]
